FAERS Safety Report 11237062 (Version 3)
Quarter: 2015Q3

REPORT INFORMATION
  Report Type: Spontaneous
  Country: FR (occurrence: FR)
  Receive Date: 20150703
  Receipt Date: 20150921
  Transmission Date: 20151125
  Serious: Yes (Hospitalization)
  Sender: FDA-Public Use
  Company Number: FR-JNJFOC-20150618803

PATIENT
  Age: 78 Year
  Sex: Male

DRUGS (11)
  1. RISPERDAL [Suspect]
     Active Substance: RISPERIDONE
     Indication: PRODUCT USED FOR UNKNOWN INDICATION
     Route: 048
     Dates: start: 20150130, end: 20150330
  2. IMOVANE [Concomitant]
     Active Substance: ZOPICLONE
     Route: 048
     Dates: start: 20150121, end: 20150416
  3. COLECALCIFEROL [Concomitant]
     Active Substance: CHOLECALCIFEROL
     Route: 048
     Dates: start: 20150330, end: 20150416
  4. EUPANTOL [Concomitant]
     Active Substance: PANTOPRAZOLE SODIUM
     Route: 048
     Dates: start: 20150121, end: 20150416
  5. DUPHALAC [Concomitant]
     Active Substance: LACTULOSE
     Route: 048
     Dates: start: 20150121, end: 20150416
  6. TIAPRIDAL [Concomitant]
     Active Substance: TIAPRIDE HYDROCHLORIDE
     Route: 048
     Dates: start: 20150121, end: 20150416
  7. DIPIPERON [Suspect]
     Active Substance: PIPAMPERONE
     Indication: PRODUCT USED FOR UNKNOWN INDICATION
     Route: 048
     Dates: start: 20150218, end: 20150225
  8. LOXAPAC [Suspect]
     Active Substance: LOXAPINE SUCCINATE
     Indication: PRODUCT USED FOR UNKNOWN INDICATION
     Route: 048
     Dates: start: 20150223, end: 20150228
  9. SECTRAL [Concomitant]
     Active Substance: ACEBUTOLOL HYDROCHLORIDE
     Route: 048
  10. LOXAPAC [Suspect]
     Active Substance: LOXAPINE SUCCINATE
     Indication: PRODUCT USED FOR UNKNOWN INDICATION
     Route: 048
     Dates: start: 20150130, end: 20150223
  11. SMECTA [Concomitant]
     Active Substance: MONTMORILLONITE
     Route: 048
     Dates: start: 20150121, end: 20150228

REACTIONS (1)
  - Deep vein thrombosis [Recovered/Resolved]

NARRATIVE: CASE EVENT DATE: 20150225
